FAERS Safety Report 18258697 (Version 3)
Quarter: 2020Q3

REPORT INFORMATION
  Report Type: Spontaneous
  Country: US (occurrence: US)
  Receive Date: 20200911
  Receipt Date: 20200918
  Transmission Date: 20201103
  Serious: Yes (Other)
  Sender: FDA-Public Use
  Company Number: US-GLAXOSMITHKLINE-US2020AMR179760

PATIENT
  Sex: Female

DRUGS (2)
  1. BENLYSTA [Suspect]
     Active Substance: BELIMUMAB
     Indication: SYSTEMIC LUPUS ERYTHEMATOSUS
     Dosage: UNK
  2. BENLYSTA [Suspect]
     Active Substance: BELIMUMAB
     Indication: SYSTEMIC LUPUS ERYTHEMATOSUS
     Dosage: UNK
     Dates: start: 2011

REACTIONS (8)
  - Mastectomy [Unknown]
  - Ill-defined disorder [Unknown]
  - Contusion [Unknown]
  - Pain [Unknown]
  - Breast cancer [Unknown]
  - Cardiac disorder [Unknown]
  - Vein collapse [Unknown]
  - Cardiac pacemaker insertion [Unknown]
